FAERS Safety Report 8520240-X (Version None)
Quarter: 2012Q3

REPORT INFORMATION
  Report Type: 
  Country: None (occurrence: None)
  Receive Date: 20120719
  Receipt Date: 20120709
  Transmission Date: 20120928
  Serious: Yes (Hospitalization, Other)
  Sender: FDA-Public Use
  Company Number: US-JNJFOC-20120704275

PATIENT
  Sex: Female
  Weight: 122.47 kg

DRUGS (7)
  1. IMITREX [Concomitant]
     Indication: HEADACHE
     Dosage: DAILY AS NEEDED
     Route: 048
     Dates: start: 20110801
  2. TOPAMAX [Suspect]
     Indication: CRANIOCEREBRAL INJURY
     Route: 048
     Dates: start: 20111101
  3. TOPAMAX [Suspect]
     Indication: ROAD TRAFFIC ACCIDENT
     Route: 048
     Dates: start: 20111101
  4. NORTRIPTYLINE HCL [Concomitant]
     Indication: NERVE INJURY
     Route: 048
     Dates: start: 20110801
  5. NAPROXEN [Concomitant]
     Indication: MIGRAINE
     Dosage: AS NEEDED
     Route: 048
     Dates: start: 20110901
  6. ORTHO CYCLEN-28 [Suspect]
     Indication: CONTRACEPTION
     Route: 048
     Dates: start: 20110701, end: 20120504
  7. ZYRTEC [Concomitant]
     Indication: MULTIPLE ALLERGIES
     Route: 048

REACTIONS (3)
  - DEEP VEIN THROMBOSIS [None]
  - INTERNATIONAL NORMALISED RATIO INCREASED [None]
  - AMNESIA [None]
